FAERS Safety Report 24820405 (Version 4)
Quarter: 2025Q2

REPORT INFORMATION
  Report Type: Spontaneous
  Country: US (occurrence: US)
  Receive Date: 20250108
  Receipt Date: 20250623
  Transmission Date: 20250716
  Serious: No
  Sender: BRISTOL-MYERS SQUIBB COMPANY
  Company Number: US-BRISTOL-MYERS SQUIBB COMPANY-2025-002963

PATIENT
  Age: 79 Year
  Sex: Female
  Weight: 55.34 kg

DRUGS (16)
  1. REVLIMID [Suspect]
     Active Substance: LENALIDOMIDE
     Indication: Plasma cell myeloma
     Route: 048
     Dates: start: 20250530
  2. REVLIMID [Suspect]
     Active Substance: LENALIDOMIDE
     Route: 048
     Dates: start: 20241218
  3. REVLIMID [Suspect]
     Active Substance: LENALIDOMIDE
     Dosage: TAKE 1 CAPSULE BY MOUTH ONCE DAILY FOR 21 DAYS ON, 7 DAYS OFF
     Route: 048
     Dates: start: 20250312, end: 20250328
  4. ELIQUIS [Concomitant]
     Active Substance: APIXABAN
     Indication: Product used for unknown indication
     Dates: start: 20241017
  5. LIDOCAINE [Concomitant]
     Active Substance: LIDOCAINE
     Indication: Product used for unknown indication
     Dates: start: 20240807
  6. VALACYCLOVIR HYDROCHLORIDE [Concomitant]
     Active Substance: VALACYCLOVIR HYDROCHLORIDE
     Indication: Product used for unknown indication
     Dates: start: 20240808
  7. XGEVA [Concomitant]
     Active Substance: DENOSUMAB
     Indication: Product used for unknown indication
     Dates: start: 20250328
  8. OXYCODONE HYDROCHLORIDE [Concomitant]
     Active Substance: OXYCODONE HYDROCHLORIDE
     Indication: Product used for unknown indication
     Dates: start: 20240807
  9. ASPIRIN [Concomitant]
     Active Substance: ASPIRIN
     Indication: Product used for unknown indication
     Dates: start: 20240808
  10. CENTRUM [ASCORBIC ACID;BETACAROTENE;COLECALCIFEROL;FOLIC ACID;MINERALS [Concomitant]
     Indication: Product used for unknown indication
     Dates: start: 20240808
  11. VITAMIN D NOS [Concomitant]
     Active Substance: CHOLECALCIFEROL\ERGOCALCIFEROL
     Indication: Product used for unknown indication
     Dates: start: 20240808
  12. ATORVASTATIN CALCIUM [Concomitant]
     Active Substance: ATORVASTATIN CALCIUM
     Indication: Product used for unknown indication
     Dates: start: 20241018
  13. CARBAMAZEPINE [Concomitant]
     Active Substance: CARBAMAZEPINE
     Indication: Product used for unknown indication
     Dates: start: 20241018
  14. DULOXETINE [Concomitant]
     Active Substance: DULOXETINE
     Indication: Product used for unknown indication
     Dates: start: 20241018
  15. FENOFIBRATE [Concomitant]
     Active Substance: FENOFIBRATE
     Indication: Product used for unknown indication
     Dates: start: 20241018
  16. GABAPENTIN [Concomitant]
     Active Substance: GABAPENTIN
     Indication: Product used for unknown indication
     Dates: start: 20241018

REACTIONS (3)
  - Peripheral swelling [Unknown]
  - Joint swelling [Unknown]
  - Upper respiratory tract infection [Unknown]

NARRATIVE: CASE EVENT DATE: 20241201
